FAERS Safety Report 16080664 (Version 1)
Quarter: 2019Q1

REPORT INFORMATION
  Report Type: Report from Study
  Country: JP (occurrence: JP)
  Receive Date: 20190316
  Receipt Date: 20190316
  Transmission Date: 20190418
  Serious: Yes (Life-Threatening)
  Sender: FDA-Public Use
  Company Number: JP-BEH-2019100481

PATIENT
  Age: 78 Year
  Sex: Male
  Weight: 62 kg

DRUGS (15)
  1. BERIPLEX P/N [Suspect]
     Active Substance: COAGULATION FACTOR IX HUMAN\COAGULATION FACTOR VII HUMAN\COAGULATION FACTOR X HUMAN\PROTEIN C\PROTEIN S HUMAN\PROTHROMBIN
     Indication: SURGERY
     Dosage: UNK
     Route: 042
  2. BERIPLEX P/N [Suspect]
     Active Substance: COAGULATION FACTOR IX HUMAN\COAGULATION FACTOR VII HUMAN\COAGULATION FACTOR X HUMAN\PROTEIN C\PROTEIN S HUMAN\PROTHROMBIN
     Dosage: 1500 IU, UNK
     Route: 042
     Dates: start: 20180517
  3. WARFARIN [Concomitant]
     Active Substance: WARFARIN
     Indication: CEREBRAL INFARCTION
     Dosage: 2 UNK, UNK
     Route: 048
     Dates: start: 20180523
  4. WARFARIN [Concomitant]
     Active Substance: WARFARIN
     Indication: PROPHYLAXIS
  5. KAYTWO [Concomitant]
     Active Substance: MENATETRENONE
     Indication: PROCOAGULANT THERAPY
     Dosage: 20 MG, TOT
     Route: 065
     Dates: start: 20180517, end: 20180517
  6. INOVAN                             /00360702/ [Concomitant]
     Active Substance: DOPAMINE HYDROCHLORIDE
     Dosage: UNK
     Route: 065
     Dates: end: 20180518
  7. PROPOFOL. [Concomitant]
     Active Substance: PROPOFOL
     Indication: SURGERY
     Dosage: UNK
     Route: 065
     Dates: start: 20180517, end: 20180521
  8. ROCURONIUM BROMIDE. [Concomitant]
     Active Substance: ROCURONIUM BROMIDE
     Indication: SURGERY
     Dosage: UNK
     Route: 065
     Dates: end: 20180517
  9. SEVOFLURANE. [Concomitant]
     Active Substance: SEVOFLURANE
     Indication: SURGERY
     Dosage: UNK
     Route: 065
     Dates: end: 20180517
  10. BERIPLEX P/N [Suspect]
     Active Substance: COAGULATION FACTOR IX HUMAN\COAGULATION FACTOR VII HUMAN\COAGULATION FACTOR X HUMAN\PROTEIN C\PROTEIN S HUMAN\PROTHROMBIN
     Indication: HAEMORRHAGE
     Route: 042
  11. MEROPENEM. [Concomitant]
     Active Substance: MEROPENEM
     Dosage: UNK
     Route: 065
     Dates: end: 20180523
  12. WARFARIN [Concomitant]
     Active Substance: WARFARIN
     Indication: ATRIAL FIBRILLATION
     Dosage: 2 MG, UNK
     Route: 048
     Dates: end: 20180516
  13. ACETAMINOPHEN. [Concomitant]
     Active Substance: ACETAMINOPHEN
     Dosage: UNK
     Route: 065
     Dates: end: 20180517
  14. SOSEGON                            /00052101/ [Concomitant]
     Active Substance: PENTAZOCINE
     Dosage: UNK
     Route: 065
     Dates: end: 20180517
  15. FENTANYL. [Concomitant]
     Active Substance: FENTANYL
     Indication: SURGERY
     Dosage: UNK
     Route: 065
     Dates: end: 20180522

REACTIONS (3)
  - Pain [Recovered/Resolved]
  - Gastritis [Recovered/Resolved]
  - Disseminated intravascular coagulation [Recovered/Resolved]

NARRATIVE: CASE EVENT DATE: 20180517
